FAERS Safety Report 15099538 (Version 2)
Quarter: 2018Q3

REPORT INFORMATION
  Report Type: Spontaneous
  Country: CA (occurrence: CA)
  Receive Date: 20180702
  Receipt Date: 20180710
  Transmission Date: 20181010
  Serious: Yes (Other)
  Sender: FDA-Public Use
  Company Number: CA-GILEAD-2018-0347857

PATIENT
  Age: 67 Year
  Sex: Male

DRUGS (1)
  1. EPCLUSA [Suspect]
     Active Substance: SOFOSBUVIR\VELPATASVIR
     Indication: CHRONIC HEPATITIS C
     Dosage: UNK
     Route: 065
     Dates: start: 20180302, end: 20180601

REACTIONS (9)
  - Feeling abnormal [Unknown]
  - Fatigue [Unknown]
  - Immune system disorder [Unknown]
  - Nausea [Unknown]
  - Influenza [Unknown]
  - Pneumonia [Unknown]
  - Migraine [Recovered/Resolved]
  - Dizziness [Unknown]
  - Impaired work ability [Unknown]

NARRATIVE: CASE EVENT DATE: 2018
